FAERS Safety Report 24564705 (Version 2)
Quarter: 2024Q4

REPORT INFORMATION
  Report Type: Spontaneous
  Country: CN (occurrence: CN)
  Receive Date: 20241030
  Receipt Date: 20241115
  Transmission Date: 20250115
  Serious: Yes (Death, Other)
  Sender: ROCHE
  Company Number: CN-ROCHE-10000118593

PATIENT
  Age: 43 Year
  Sex: Female

DRUGS (1)
  1. RITUXIMAB [Suspect]
     Active Substance: RITUXIMAB
     Indication: Systemic lupus erythematosus
     Route: 065

REACTIONS (9)
  - Euthanasia [Fatal]
  - Renal failure [Unknown]
  - Off label use [Unknown]
  - Disease recurrence [Unknown]
  - Pneumonia [Unknown]
  - Skin infection [Unknown]
  - Injury [Unknown]
  - Herpes zoster [Unknown]
  - Azotaemia [Unknown]
